FAERS Safety Report 23116541 (Version 3)
Quarter: 2023Q4

REPORT INFORMATION
  Report Type: Spontaneous
  Country: US (occurrence: None)
  Receive Date: 20231027
  Receipt Date: 20231108
  Transmission Date: 20240109
  Serious: Yes (Other)
  Sender: FDA-Public Use
  Company Number: 2023A244325

PATIENT
  Age: 14 Month
  Sex: Male
  Weight: 10.5 kg

DRUGS (3)
  1. BEYFORTUS [Suspect]
     Active Substance: NIRSEVIMAB-ALIP
     Indication: Immunisation
     Dosage: 200 MG, QD, 100 MG IN ONE LEG, AND ANOTHER 100 MG IN THE OTHER LEG
     Route: 030
     Dates: start: 20231017, end: 20231017
  2. SYNAGIS [Concomitant]
     Active Substance: PALIVIZUMAB
  3. FAMOTIDINE [Concomitant]
     Active Substance: FAMOTIDINE
     Dosage: 0.6 ML, QW
     Dates: start: 20221014

REACTIONS (8)
  - Haematochezia [Recovered/Resolved]
  - Intussusception [Unknown]
  - Rectal haemorrhage [Unknown]
  - Mucous stools [Not Recovered/Not Resolved]
  - Irritability [Not Recovered/Not Resolved]
  - Conjunctivitis [Not Recovered/Not Resolved]
  - Feeling abnormal [Unknown]
  - Eyelid margin crusting [Not Recovered/Not Resolved]

NARRATIVE: CASE EVENT DATE: 20231017
